FAERS Safety Report 8444890-4 (Version None)
Quarter: 2012Q2

REPORT INFORMATION
  Report Type: 
  Country: None (occurrence: None)
  Receive Date: 20120323
  Receipt Date: 20111114
  Transmission Date: 20120825
  Serious: Yes (Hospitalization)
  Sender: FDA-Public Use
  Company Number: 163-21880-11082130

PATIENT
  Age: 73 Year
  Sex: Male
  Weight: 77.1115 kg

DRUGS (3)
  1. REVLIMID [Suspect]
     Indication: MULTIPLE MYELOMA
     Dosage: 5 MG, QD X DAYS 1-21, PO
     Route: 048
     Dates: start: 20110721, end: 20110901
  2. MORPHINE [Concomitant]
  3. OXYCODONE (OXYCODONE) (UNKNOWN) [Concomitant]

REACTIONS (1)
  - BACK PAIN [None]
